FAERS Safety Report 16201897 (Version 1)
Quarter: 2019Q2

REPORT INFORMATION
  Report Type: Spontaneous
  Country: US (occurrence: US)
  Receive Date: 20190312
  Receipt Date: 20190312
  Transmission Date: 20190711
  Serious: No
  Sender: FDA-Public Use
  Company Number: None

PATIENT
  Age: 64 Year
  Sex: Female

DRUGS (2)
  1. H.P. ACTHAR [Concomitant]
     Active Substance: CORTICOTROPIN
  2. PREVALIN [Suspect]
     Active Substance: CROMOLYN SODIUM
     Indication: RHEUMATOID ARTHRITIS

REACTIONS (2)
  - Headache [None]
  - Fatigue [None]
